FAERS Safety Report 25552449 (Version 1)
Quarter: 2025Q3

REPORT INFORMATION
  Report Type: Report from Study
  Country: CA (occurrence: CA)
  Receive Date: 20250715
  Receipt Date: 20250715
  Transmission Date: 20251021
  Serious: Yes (Other)
  Sender: JOHNSON AND JOHNSON
  Company Number: CA-JNJFOC-20250713380

PATIENT
  Age: 16 Year
  Sex: Male
  Weight: 65.6 kg

DRUGS (1)
  1. REMICADE [Suspect]
     Active Substance: INFLIXIMAB
     Indication: Crohn^s disease
     Route: 041

REACTIONS (2)
  - Foot fracture [Recovering/Resolving]
  - Sports injury [Recovering/Resolving]

NARRATIVE: CASE EVENT DATE: 20250618
